FAERS Safety Report 15316618 (Version 1)
Quarter: 2018Q4

REPORT INFORMATION
  Report Type: Spontaneous
  Country: BE (occurrence: BE)
  Receive Date: 20180824
  Receipt Date: 20180824
  Transmission Date: 20190204
  Serious: Yes (Death)
  Sender: FDA-Public Use
  Company Number: BE-BAUSCH-BL-2018-023144

PATIENT
  Sex: Male

DRUGS (2)
  1. DIAZEPAM. [Suspect]
     Active Substance: DIAZEPAM
     Indication: PRODUCT USED FOR UNKNOWN INDICATION
     Route: 065
  2. TRADONAL RETARD 150 MG CAPSULAS DURAS DE LIBERACION PROLONGADA, 60 C?P [Suspect]
     Active Substance: TRAMADOL HYDROCHLORIDE
     Indication: PRODUCT USED FOR UNKNOWN INDICATION
     Route: 065

REACTIONS (11)
  - Drug dependence [Fatal]
  - Drug withdrawal syndrome [Fatal]
  - Fall [Fatal]
  - Somnolence [Fatal]
  - Respiratory arrest [Fatal]
  - Depressed level of consciousness [Fatal]
  - Coma [Fatal]
  - General physical health deterioration [Fatal]
  - Memory impairment [Fatal]
  - Accident [Fatal]
  - Spinal column injury [Fatal]
